FAERS Safety Report 7412156-7 (Version None)
Quarter: 2011Q2

REPORT INFORMATION
  Report Type: 
  Country: None (occurrence: None)
  Receive Date: 20110413
  Receipt Date: 20110408
  Transmission Date: 20111010
  Serious: Yes (Death)
  Sender: FDA-Public Use
  Company Number: IE-PFIZER INC-2011080048

PATIENT
  Age: 53 Year
  Sex: Male

DRUGS (1)
  1. LUSTRAL [Suspect]

REACTIONS (1)
  - DEATH [None]
